FAERS Safety Report 7973030-0 (Version None)
Quarter: 2011Q4

REPORT INFORMATION
  Report Type: 
  Country: None (occurrence: None)
  Receive Date: 20111213
  Receipt Date: 20111205
  Transmission Date: 20120403
  Serious: Yes (Life-Threatening)
  Sender: FDA-Public Use
  Company Number: JP-BRISTOL-MYERS SQUIBB COMPANY-16095895

PATIENT
  Age: 54 Year
  Sex: Male

DRUGS (10)
  1. LIPITOR [Concomitant]
     Indication: HYPERLIPIDAEMIA
     Dosage: 07JAN2011-14SEP2011 22APR-UNK DATE
     Route: 048
     Dates: start: 20110107, end: 20110914
  2. AMARYL [Concomitant]
     Dates: start: 20110422
  3. NESINA [Concomitant]
     Indication: DIABETES MELLITUS
     Route: 048
     Dates: start: 20110225, end: 20110914
  4. DIFLUNISAL [Suspect]
     Indication: HYPERTENSION
     Dosage: 07JAN2011-14SEP2011; 22APR2011-UNK DATE
     Route: 048
     Dates: start: 20110107, end: 20110914
  5. ACTOS [Concomitant]
     Dates: start: 20110107
  6. METFORMIN HCL [Suspect]
     Indication: DIABETES MELLITUS
     Route: 048
     Dates: start: 20110720, end: 20110914
  7. NOVORAPID [Concomitant]
     Dosage: 1DF:6-10-10 UNITS NOS UNK-07JAN2011 2NOV11-UNK
     Dates: end: 20110107
  8. CANDESARTAN CILEXETIL [Concomitant]
     Dates: start: 20111102
  9. METFORMIN HCL [Concomitant]
     Dosage: 1FD:1T*3*/DAY 07JAN2011-UNK 25FEB2011-UNK
     Dates: start: 20110107
  10. GLUCOBAY [Concomitant]
     Dosage: 07JAN2011-UNK 25FEB2011-UNK
     Dates: start: 20110107

REACTIONS (3)
  - HYPERKALAEMIA [None]
  - LACTIC ACIDOSIS [None]
  - RENAL FAILURE ACUTE [None]
